APPROVED DRUG PRODUCT: ATORVASTATIN CALCIUM
Active Ingredient: ATORVASTATIN CALCIUM
Strength: EQ 10MG BASE
Dosage Form/Route: TABLET;ORAL
Application: A212103 | Product #001
Applicant: CADILA PHARMACEUTICALS LTD
Approved: Oct 16, 2023 | RLD: No | RS: No | Type: DISCN